FAERS Safety Report 13898484 (Version 1)
Quarter: 2017Q3

REPORT INFORMATION
  Report Type: Spontaneous
  Country: BR (occurrence: BR)
  Receive Date: 20170823
  Receipt Date: 20170823
  Transmission Date: 20171127
  Serious: Yes (Death, Hospitalization)
  Sender: FDA-Public Use
  Company Number: BR-ASTRAZENECA-2017SE85592

PATIENT
  Age: 80 Year
  Sex: Female

DRUGS (5)
  1. LABIRIN [Concomitant]
     Active Substance: BETAHISTINE
     Indication: LABYRINTHITIS
     Dates: start: 2009
  2. ATROVENT [Concomitant]
     Active Substance: IPRATROPIUM BROMIDE
  3. VANNAIR [Suspect]
     Active Substance: BUDESONIDE\FORMOTEROL FUMARATE DIHYDRATE
     Indication: BRONCHITIS
     Dosage: 160/4.5 UG, TWO TIMES A DAY
     Route: 055
     Dates: start: 2015
  4. LOSARTAN. [Concomitant]
     Active Substance: LOSARTAN
     Indication: BLOOD PRESSURE ABNORMAL
     Dosage: 50.0MG UNKNOWN
     Dates: start: 2002
  5. BEROTEC [Concomitant]
     Active Substance: FENOTEROL HYDROBROMIDE

REACTIONS (6)
  - Cardiac disorder [Fatal]
  - Respiratory disorder [Fatal]
  - Lung disorder [Unknown]
  - Asthenia [Unknown]
  - Swelling [Recovered/Resolved]
  - Cardiomegaly [Unknown]

NARRATIVE: CASE EVENT DATE: 2015
